FAERS Safety Report 18419288 (Version 1)
Quarter: 2020Q4

REPORT INFORMATION
  Report Type: Spontaneous
  Country: CN (occurrence: CN)
  Receive Date: 20201023
  Receipt Date: 20201023
  Transmission Date: 20210114
  Serious: Yes (Hospitalization)
  Sender: FDA-Public Use
  Company Number: CN-ASTRAZENECA-2020SF37721

PATIENT
  Age: 27029 Day
  Sex: Female
  Weight: 68 kg

DRUGS (1)
  1. BRILINTA [Suspect]
     Active Substance: TICAGRELOR
     Indication: CORONARY ARTERY DISEASE
     Route: 048
     Dates: start: 20200902, end: 20200921

REACTIONS (3)
  - Gastrointestinal disorder [Unknown]
  - Haemorrhage subcutaneous [Recovering/Resolving]
  - Oesophageal obstruction [Unknown]

NARRATIVE: CASE EVENT DATE: 20200920
